FAERS Safety Report 22941438 (Version 7)
Quarter: 2023Q4

REPORT INFORMATION
  Report Type: Report from Study
  Country: GR (occurrence: GR)
  Receive Date: 20230914
  Receipt Date: 20231107
  Transmission Date: 20240110
  Serious: Yes (Death, Hospitalization, Other)
  Sender: FDA-Public Use
  Company Number: GR-ABBVIE-5177449

PATIENT
  Sex: Female

DRUGS (3)
  1. CARBIDOPA\LEVODOPA [Suspect]
     Active Substance: CARBIDOPA\LEVODOPA
     Indication: Parkinson^s disease
     Dosage: MORNING DOSE: 10.0ML; CONTINUOUS RATE: 3.8ML/H; EXTRA DOSE: 1.9ML
     Route: 050
     Dates: start: 20180417
  2. CARBIDOPA\LEVODOPA [Suspect]
     Active Substance: CARBIDOPA\LEVODOPA
     Dosage: MORNING DOSE: 10.0ML; CONTINUOUS RATE: 3.8ML/H; EXTRA DOSE: 1.9ML
     Route: 050
     Dates: end: 20230922
  3. BENSERAZIDE HYDROCHLORIDE\LEVODOPA [Concomitant]
     Active Substance: BENSERAZIDE HYDROCHLORIDE\LEVODOPA
     Indication: Product used for unknown indication

REACTIONS (16)
  - Cardiac arrest [Fatal]
  - Urinary incontinence [Unknown]
  - Abnormal dreams [Unknown]
  - Infection [Fatal]
  - Stoma site discharge [Unknown]
  - Stoma site irritation [Not Recovered/Not Resolved]
  - Soliloquy [Unknown]
  - Stoma site inflammation [Unknown]
  - Pyrexia [Recovered/Resolved]
  - Nephrolithiasis [Unknown]
  - Pyrexia [Not Recovered/Not Resolved]
  - Klebsiella bacteraemia [Unknown]
  - Urinary tract infection [Recovered/Resolved]
  - Stoma site infection [Not Recovered/Not Resolved]
  - Multiple organ dysfunction syndrome [Not Recovered/Not Resolved]
  - Dysphagia [Unknown]
